FAERS Safety Report 18122851 (Version 1)
Quarter: 2020Q3

REPORT INFORMATION
  Report Type: Spontaneous
  Country: US (occurrence: US)
  Receive Date: 20200806
  Receipt Date: 20200806
  Transmission Date: 20201103
  Serious: Yes (Other)
  Sender: FDA-Public Use
  Company Number: None

PATIENT
  Age: 46 Year
  Sex: Female
  Weight: 90 kg

DRUGS (8)
  1. ALLERAMIN [Concomitant]
     Active Substance: PERILLA FRUTESCENS LEAF
  2. SEPTOCAINE [Suspect]
     Active Substance: ARTICAINE HYDROCHLORIDE\EPINEPHRINE BITARTRATE
     Indication: LOCAL ANAESTHESIA
     Dosage: ?          OTHER ROUTE:INJECTION INTO SOFT TISSUE IN MOUTH?
     Dates: start: 20200730, end: 20200730
  3. RANITADINE [Concomitant]
  4. SINGULAIR [Concomitant]
     Active Substance: MONTELUKAST SODIUM
  5. IBRUOPREN [Concomitant]
  6. PROBIOTIC [Concomitant]
     Active Substance: PROBIOTICS NOS
  7. LIDOCAINE. [Suspect]
     Active Substance: LIDOCAINE
  8. ATTARAX [Concomitant]

REACTIONS (8)
  - Chest discomfort [None]
  - Swollen tongue [None]
  - Respiratory rate decreased [None]
  - Injection related reaction [None]
  - Pharyngeal swelling [None]
  - Pain in jaw [None]
  - Swelling [None]
  - Swelling face [None]

NARRATIVE: CASE EVENT DATE: 20200730
